FAERS Safety Report 25081750 (Version 1)
Quarter: 2025Q1

REPORT INFORMATION
  Report Type: Spontaneous
  Country: CA (occurrence: CA)
  Receive Date: 20250317
  Receipt Date: 20250317
  Transmission Date: 20250408
  Serious: Yes (Other)
  Sender: PFIZER
  Company Number: CA-PFIZER INC-202500053148

PATIENT
  Age: 88 Year
  Sex: Male

DRUGS (1)
  1. VYNDAMAX [Suspect]
     Active Substance: TAFAMIDIS
     Indication: Cardiac amyloidosis
     Dosage: 61 MG, 1X/DAY
     Route: 048
     Dates: start: 20240207

REACTIONS (9)
  - Heart failure with reduced ejection fraction [Unknown]
  - Dyspnoea [Unknown]
  - Peripheral swelling [Recovering/Resolving]
  - Oedema peripheral [Recovering/Resolving]
  - Dyspnoea paroxysmal nocturnal [Unknown]
  - Abdominal rigidity [Unknown]
  - Insomnia [Unknown]
  - Muscle spasms [Unknown]
  - Dyspnoea exertional [Not Recovered/Not Resolved]
